FAERS Safety Report 24857017 (Version 1)
Quarter: 2025Q1

REPORT INFORMATION
  Report Type: Spontaneous
  Country: US (occurrence: None)
  Receive Date: 20250116
  Receipt Date: 20250116
  Transmission Date: 20250408
  Serious: Yes (Death)
  Sender: FDA-CTU
  Company Number: None

PATIENT
  Age: 60 Year
  Sex: Male

DRUGS (2)
  1. TACROLIMUS [Suspect]
     Active Substance: TACROLIMUS
     Indication: Renal transplant
     Dosage: 2 MG TWICE A DAY ORAL
     Route: 048
     Dates: start: 20220124
  2. MYCOPHENOLIC ACID [Concomitant]
     Active Substance: MYCOPHENOLIC ACID
     Dates: start: 20220124

REACTIONS (7)
  - Disease complication [None]
  - Renal transplant [None]
  - Hypotension [None]
  - Liver disorder [None]
  - Renal disorder [None]
  - Cardiac disorder [None]
  - General physical health deterioration [None]

NARRATIVE: CASE EVENT DATE: 20250112
